FAERS Safety Report 9832494 (Version 1)
Quarter: 2014Q1

REPORT INFORMATION
  Report Type: Spontaneous
  Country: CA (occurrence: CA)
  Receive Date: 20140121
  Receipt Date: 20140121
  Transmission Date: 20141002
  Serious: Yes (Life-Threatening, Hospitalization)
  Sender: FDA-Public Use
  Company Number: CA-ASTRAZENECA-2014SE03864

PATIENT
  Age: 5 Year
  Sex: Male
  Weight: 18 kg

DRUGS (1)
  1. EMLA CREAM [Suspect]
     Route: 061

REACTIONS (1)
  - Methaemoglobinaemia [Unknown]
